FAERS Safety Report 8405731-4 (Version None)
Quarter: 2012Q2

REPORT INFORMATION
  Report Type: 
  Country: None (occurrence: None)
  Receive Date: 20120530
  Receipt Date: 20120530
  Transmission Date: 20120825
  Serious: No
  Sender: FDA-Public Use
  Company Number: None

PATIENT
  Sex: Female

DRUGS (1)
  1. AVONEX [Suspect]
     Dosage: 30 MCG/0.5ML IM INJECT 30MCG (0.5ML) INTRAMUSCULARLY ONCE A  WEEK AS DIRECTED BY YOUR PHYSICIAN
     Route: 030

REACTIONS (1)
  - INFLUENZA LIKE ILLNESS [None]
